FAERS Safety Report 19482963 (Version 1)
Quarter: 2021Q3

REPORT INFORMATION
  Report Type: Report from Study
  Country: CA (occurrence: CA)
  Receive Date: 20210701
  Receipt Date: 20210701
  Transmission Date: 20211014
  Serious: Yes (Hospitalization)
  Sender: FDA-Public Use
  Company Number: CA-HLS-202107849

PATIENT
  Age: 86 Year
  Sex: Female

DRUGS (25)
  1. CLOZARIL [Suspect]
     Active Substance: CLOZAPINE
     Indication: DELUSION
     Dosage: 1 TABLET AT BEDTIME
     Route: 048
     Dates: start: 20210127
  2. LEVODOPA?CARBIDOPA [Concomitant]
     Active Substance: CARBIDOPA\LEVODOPA
     Indication: CHOKING
     Dosage: 1 TABLET BY MOUTH EVERY 6 HOURS WHEN NEEDED
     Route: 048
     Dates: start: 20210127
  3. FERROUS GLUCONATE [Concomitant]
     Active Substance: FERROUS GLUCONATE
     Indication: ANAEMIA
     Dosage: 1 TABLET DAILY
     Route: 048
     Dates: start: 202101
  4. QUETIAPINE FUMARATE. [Concomitant]
     Active Substance: QUETIAPINE FUMARATE
     Indication: DELUSION
     Dosage: GIVE 2 + HALS TABLET (62.5MG) BY MOUTH DAILY AT BEDTIME
     Route: 048
     Dates: start: 20210127
  5. TRIETHANOLAMINE SALICYLATE [Concomitant]
     Indication: PRODUCT USED FOR UNKNOWN INDICATION
     Route: 065
     Dates: start: 20210127
  6. DENOSUMAB SOLUTION [Concomitant]
     Indication: FRAMINGHAM RISK SCORE
     Dosage: INJECT 60 MG ONE SUBCUTANEOUSLY ONE TIME A DAY EVERY 6 MONTHS
     Route: 058
     Dates: start: 20210419
  7. CLONAZEPAM. [Concomitant]
     Active Substance: CLONAZEPAM
     Indication: ANXIETY
     Dosage: 1/2 TAB (0.25MG) EVERY 6 HOURS WHEN NEEDED
     Route: 048
     Dates: start: 20210127
  8. ACETAMINOPHEN. [Concomitant]
     Active Substance: ACETAMINOPHEN
     Indication: PRODUCT USED FOR UNKNOWN INDICATION
     Dosage: GIVE 1 OR 2 TAB (500/1000) MG EVERY 4 TO 6 HOURS
     Route: 048
     Dates: start: 20210127
  9. MELATONIN [Concomitant]
     Active Substance: MELATONIN
     Indication: PRODUCT USED FOR UNKNOWN INDICATION
     Dosage: 1 TABLET UNDER THE TONGUE DAILY AT BEDTIME
     Route: 065
     Dates: start: 20210127
  10. LEVODOPA?CARBIDOPA [Concomitant]
     Active Substance: CARBIDOPA\LEVODOPA
     Indication: PARKINSON^S DISEASE
     Dosage: 100?25 MG , 1 TABLET BY MOUTH DAILY AT 0230
     Route: 048
     Dates: start: 20210127
  11. SODIUM HYALURONATE [Concomitant]
     Active Substance: HYALURONATE SODIUM
     Indication: VULVOVAGINAL DRYNESS
     Dosage: INSERT 1 SUPPOSITORY INTO THE VAGINA AT BEDTIME ON WED, FRI, AND SUN
     Route: 067
     Dates: start: 20210127
  12. POLYETHYLENE GLYCOL 3350 POWDER [Concomitant]
     Active Substance: POLYETHYLENE GLYCOL 3350
     Indication: PRODUCT USED FOR UNKNOWN INDICATION
     Dosage: 17 G BY MOUTH (MIX 17 MG IN 120?240ML OF WATER/JUICE AND DRINK ONCE DAILY, IF DIARRHEA/LOOSE STOOLS,
     Route: 048
     Dates: start: 20210127
  13. VITAMIN D [Concomitant]
     Active Substance: VITAMIN D NOS
     Indication: VITAMIN D DECREASED
     Dosage: 2 TABLET BY MOUTH ONE TIME A DAY
     Route: 048
     Dates: start: 20210617
  14. METHYLCOBALAMINE [Concomitant]
     Active Substance: METHYLCOBALAMIN
     Indication: VITAMIN B2
     Dosage: 1 TAB BY MOUTH DAILY
     Route: 048
     Dates: start: 20210127
  15. CLOZARIL [Suspect]
     Active Substance: CLOZAPINE
     Indication: DELUSION
     Route: 048
     Dates: start: 20201006
  16. LEVOTHYROXINE SODIUM. [Concomitant]
     Active Substance: LEVOTHYROXINE SODIUM
     Indication: PRODUCT USED FOR UNKNOWN INDICATION
     Dosage: 1 TABLET BY MOUTH ONCE DAILY
     Route: 048
  17. LEVODOPA?CARBIDOPA [Concomitant]
     Active Substance: CARBIDOPA\LEVODOPA
     Indication: ON AND OFF PHENOMENON
     Dosage: 100?25 MG , 1 TABLET BY MOUTH DAILY AT 0230
     Route: 048
     Dates: start: 20210127
  18. LEVODOPA?CARBIDOPA [Concomitant]
     Active Substance: CARBIDOPA\LEVODOPA
     Dosage: 100?25, 5 ML MISCELLANEOUS FOUR TIMES A DAY
     Route: 048
     Dates: start: 20210506
  19. GLYCERIN SUPPOSITORY [Concomitant]
     Active Substance: GLYCERIN
     Indication: CONSTIPATION
     Dosage: UNWRAP AND INSERT 1 SUPPOSITORY IN THE RECTUM DAILY WHEN NEEDED
     Route: 054
     Dates: start: 20210127
  20. SENNOSIDE A + B [Concomitant]
     Indication: CONSTIPATION
     Dosage: T TABLET BY MOUTH DAILY WHEN NEEDED
     Route: 048
     Dates: start: 20210127
  21. NITROGLYCERIN. [Concomitant]
     Active Substance: NITROGLYCERIN
     Indication: CHEST PAIN
     Dosage: USE 1 SPRAY TRANSLINGUALLY EVERY 5 MINUTES WHEN NEEDED.
     Route: 065
     Dates: start: 20210127
  22. DULOXETINE. [Concomitant]
     Active Substance: DULOXETINE
     Indication: PRODUCT USED FOR UNKNOWN INDICATION
     Dosage: 1 CAPSULE ONCE DAILY
     Route: 048
     Dates: start: 20210127
  23. ENSURE PLUS VANILLA [Concomitant]
     Indication: SUPPLEMENTATION THERAPY
     Dosage: TWO TIMES A DAY BOTTLE ,ENSURE PLUS AT BREAKFAST AND EVENING SANCK
     Route: 065
     Dates: start: 20210329
  24. LEVODOPA?CARBIDOPA [Concomitant]
     Active Substance: CARBIDOPA\LEVODOPA
     Dosage: 110?25 MG /5 ML ,MISCELLANOUS FOR 5 TIMES PER DAY
     Route: 048
     Dates: start: 20210506
  25. ACETYLSALICYLIC ACID [Concomitant]
     Active Substance: ASPIRIN
     Indication: PRODUCT USED FOR UNKNOWN INDICATION
     Dosage: T TAB DAILY
     Route: 048
     Dates: start: 20210127

REACTIONS (16)
  - Hallucination [Recovering/Resolving]
  - Urinary tract infection [Unknown]
  - Moaning [Unknown]
  - Agitation [Unknown]
  - Paranoia [Unknown]
  - Depressed mood [Unknown]
  - Pollakiuria [Unknown]
  - Choking sensation [Unknown]
  - Sedation [Unknown]
  - Psychotic disorder [Unknown]
  - Respiratory distress [Unknown]
  - Delusion [Recovering/Resolving]
  - Micturition urgency [Unknown]
  - Parkinson^s disease [Unknown]
  - Fatigue [Unknown]
  - Dysuria [Unknown]

NARRATIVE: CASE EVENT DATE: 20210401
